FAERS Safety Report 8664792 (Version 3)
Quarter: 2013Q4

REPORT INFORMATION
  Report Type: Report from Study
  Country: MX (occurrence: MX)
  Receive Date: 20120713
  Receipt Date: 20131029
  Transmission Date: 20140711
  Serious: Yes (Life-Threatening)
  Sender: FDA-Public Use
  Company Number: MX-PFIZER INC-2012165109

PATIENT
  Age: 62 Year
  Sex: Male

DRUGS (1)
  1. SUNITINIB MALATE [Suspect]
     Dosage: 25 MG, 1X/DAY
     Route: 048
     Dates: start: 20090212

REACTIONS (1)
  - No adverse event [Unknown]
